FAERS Safety Report 8117950-5 (Version None)
Quarter: 2012Q1

REPORT INFORMATION
  Report Type: 
  Country: None (occurrence: None)
  Receive Date: 20120207
  Receipt Date: 20111213
  Transmission Date: 20120608
  Serious: Yes (Death, Other)
  Sender: FDA-Public Use
  Company Number: FR-CELGENEUS-056-21880-11121796

PATIENT
  Age: 57 Year
  Sex: Female

DRUGS (3)
  1. REVLIMID [Suspect]
     Indication: MULTIPLE MYELOMA
     Dosage: 15 MILLIGRAM
     Route: 048
     Dates: start: 20110614, end: 20110815
  2. VELCADE [Suspect]
     Indication: MULTIPLE MYELOMA
     Route: 041
     Dates: start: 20110214, end: 20110812
  3. NEODEX [Suspect]
     Indication: MULTIPLE MYELOMA
     Dosage: 5.7143 MILLIGRAM
     Route: 048
     Dates: start: 20110214, end: 20110801

REACTIONS (2)
  - STATUS EPILEPTICUS [None]
  - KLEBSIELLA INFECTION [None]
